FAERS Safety Report 4979324-5 (Version None)
Quarter: 2006Q2

REPORT INFORMATION
  Report Type: 
  Country: None (occurrence: None)
  Receive Date: 20060421
  Receipt Date: 20050421
  Transmission Date: 20061013
  Serious: Yes (Hospitalization, Disabling, Other)
  Sender: FDA-Public Use
  Company Number: US-MERCK-0504USA04218

PATIENT
  Age: 44 Year
  Sex: Female
  Weight: 81 kg

DRUGS (1)
  1. VIOXX [Suspect]
     Indication: BACK PAIN
     Route: 048
     Dates: start: 20020401, end: 20020501

REACTIONS (6)
  - BACK DISORDER [None]
  - BACK INJURY [None]
  - BLADDER DISORDER [None]
  - CEREBROVASCULAR ACCIDENT [None]
  - NERVOUSNESS [None]
  - PRESCRIBED OVERDOSE [None]
